FAERS Safety Report 17669445 (Version 1)
Quarter: 2020Q2

REPORT INFORMATION
  Report Type: Spontaneous
  Country: US (occurrence: US)
  Receive Date: 20200415
  Receipt Date: 20200415
  Transmission Date: 20200713
  Serious: No
  Sender: FDA-Public Use
  Company Number: US-MYLANLABS-2020M1036943

PATIENT
  Age: 79 Year
  Sex: Female
  Weight: 59.9 kg

DRUGS (1)
  1. MESALAMINE RECTAL SUSPENSION ENEMA [Suspect]
     Active Substance: MESALAMINE
     Indication: INFECTION
     Dosage: 2 BOTTLES/TWICE A DAY
     Route: 054
     Dates: start: 20200402

REACTIONS (2)
  - Pain [Not Recovered/Not Resolved]
  - Product dispensing issue [Unknown]

NARRATIVE: CASE EVENT DATE: 202004
